FAERS Safety Report 18616809 (Version 1)
Quarter: 2020Q4

REPORT INFORMATION
  Report Type: Spontaneous
  Country: US (occurrence: US)
  Receive Date: 20201215
  Receipt Date: 20201215
  Transmission Date: 20210114
  Serious: No
  Sender: FDA-Public Use
  Company Number: US-SA-2020SA357096

PATIENT

DRUGS (15)
  1. METOPROLOL SUCCINATE. [Concomitant]
     Active Substance: METOPROLOL SUCCINATE
  2. DAILY VITAMINS [Concomitant]
     Active Substance: VITAMINS
  3. PREDNISONE. [Concomitant]
     Active Substance: PREDNISONE
  4. PROBIOTICS NOS [Concomitant]
     Active Substance: PROBIOTICS NOS
  5. FLUTICASONE PROPIONATE. [Concomitant]
     Active Substance: FLUTICASONE PROPIONATE
  6. BIOTIN [Concomitant]
     Active Substance: BIOTIN
  7. VALTREX [Concomitant]
     Active Substance: VALACYCLOVIR HYDROCHLORIDE
  8. NEURONTIN [Concomitant]
     Active Substance: GABAPENTIN
  9. CYMBALTA [Concomitant]
     Active Substance: DULOXETINE HYDROCHLORIDE
  10. MOBIC [Concomitant]
     Active Substance: MELOXICAM
  11. KEPPRA [Concomitant]
     Active Substance: LEVETIRACETAM
  12. HYDROXYCHLOROQUINE SULFATE. [Concomitant]
     Active Substance: HYDROXYCHLOROQUINE SULFATE
  13. MACROBID [CLARITHROMYCIN] [Concomitant]
     Active Substance: CLARITHROMYCIN
  14. AUBAGIO [Suspect]
     Active Substance: TERIFLUNOMIDE
     Indication: MULTIPLE SCLEROSIS
     Dosage: 7 MG, QD
     Route: 048
  15. ADDERALL [Concomitant]
     Active Substance: AMPHETAMINE ASPARTATE\AMPHETAMINE SULFATE\DEXTROAMPHETAMINE SACCHARATE\DEXTROAMPHETAMINE SULFATE

REACTIONS (3)
  - Pruritus [Unknown]
  - Muscle spasms [Unknown]
  - Urinary bladder suspension [Unknown]
